FAERS Safety Report 5385342-8 (Version None)
Quarter: 2007Q3

REPORT INFORMATION
  Report Type: 
  Country: None (occurrence: None)
  Receive Date: 20070709
  Receipt Date: 20070709
  Transmission Date: 20080115
  Serious: Yes (Hospitalization)
  Sender: FDA-Public Use
  Company Number: None

PATIENT
  Sex: Male
  Weight: 91.3 kg

DRUGS (1)
  1. CLOZAPINE [Suspect]
     Indication: SCHIZOAFFECTIVE DISORDER
     Dosage: 250MG QHS PO
     Route: 048
     Dates: start: 20070620, end: 20070706

REACTIONS (3)
  - MITRAL VALVE INCOMPETENCE [None]
  - MYOCARDITIS [None]
  - SINUS TACHYCARDIA [None]
